FAERS Safety Report 9368706 (Version 1)
Quarter: 2013Q2

REPORT INFORMATION
  Report Type: Report from Study
  Country: BR (occurrence: BR)
  Receive Date: 20130626
  Receipt Date: 20130626
  Transmission Date: 20140414
  Serious: Yes (Other)
  Sender: FDA-Public Use
  Company Number: BR-ROCHE-1240636

PATIENT
  Sex: Male
  Weight: 73 kg

DRUGS (2)
  1. INTERFERON ALFA-2A [Suspect]
     Indication: HEPATITIS C
     Route: 065
     Dates: start: 200409, end: 2005
  2. RIBAVIRIN [Suspect]
     Indication: HEPATITIS C
     Route: 065
     Dates: start: 200409, end: 2005

REACTIONS (6)
  - Hepatic cirrhosis [Unknown]
  - Disease progression [Unknown]
  - Asthenia [Unknown]
  - Irritability [Unknown]
  - Mood altered [Unknown]
  - Alopecia [Unknown]
